FAERS Safety Report 9008666 (Version 1)
Quarter: 2013Q1

REPORT INFORMATION
  Report Type: Spontaneous
  Country: NL (occurrence: NL)
  Receive Date: 20130111
  Receipt Date: 20130111
  Transmission Date: 20140127
  Serious: Yes (Hospitalization)
  Sender: FDA-Public Use
  Company Number: NL-PFIZER INC-2013006757

PATIENT
  Sex: Female

DRUGS (13)
  1. CLINDAMYCIN HCL [Suspect]
     Indication: ABSCESS JAW
  2. FUROSEMIDE [Concomitant]
  3. PARACETAMOL [Concomitant]
  4. ATORVASTATIN [Concomitant]
  5. TRAMADOL [Concomitant]
  6. OMEPRAZOLE [Concomitant]
  7. DILTIAZEM [Concomitant]
  8. PERINDOPRIL [Concomitant]
  9. PREDNISOLONE [Concomitant]
  10. LOPERAMIDE [Concomitant]
  11. CALCIUM CARBONATE [Concomitant]
  12. ACENOCOUMAROL [Concomitant]
  13. DICLOFENAC [Concomitant]

REACTIONS (5)
  - Acute generalised exanthematous pustulosis [Recovered/Resolved]
  - Haemodynamic instability [Recovered/Resolved]
  - Pyrexia [Recovered/Resolved]
  - International normalised ratio increased [Recovered/Resolved]
  - Ventricular tachycardia [Recovered/Resolved]
